FAERS Safety Report 5919461-1 (Version None)
Quarter: 2008Q4

REPORT INFORMATION
  Report Type: 
  Country: None (occurrence: None)
  Receive Date: 20081015
  Receipt Date: 20081009
  Transmission Date: 20090506
  Serious: Yes (Death, Other)
  Sender: FDA-Public Use
  Company Number: PHBS2008TW05972

PATIENT
  Age: 27 Year
  Sex: Male

DRUGS (6)
  1. CYCLOSPORINE [Suspect]
     Indication: BONE MARROW TRANSPLANT
  2. CYCLOSPORINE [Suspect]
     Indication: PROPHYLAXIS AGAINST GRAFT VERSUS HOST DISEASE
  3. ANTI-THYMOCYTE GLOBULIN NOS [Suspect]
     Indication: BONE MARROW TRANSPLANT
  4. METHOTREXATE [Concomitant]
     Indication: BONE MARROW TRANSPLANT
  5. STEROIDS NOS [Suspect]
     Indication: BONE MARROW TRANSPLANT
  6. CYCLOPHOSPHAMIDE [Concomitant]
     Indication: BONE MARROW TRANSPLANT

REACTIONS (8)
  - B-CELL LYMPHOMA STAGE IV [None]
  - BIOPSY LUNG [None]
  - DYSPNOEA [None]
  - EPSTEIN-BARR VIRUS ASSOCIATED LYMPHOPROLIFERATIVE DISORDER [None]
  - EPSTEIN-BARR VIRUS INFECTION [None]
  - HYPERGLYCAEMIC HYPEROSMOLAR NONKETOTIC SYNDROME [None]
  - LUNG NEOPLASM [None]
  - PYREXIA [None]
